FAERS Safety Report 21477138 (Version 1)
Quarter: 2022Q4

REPORT INFORMATION
  Report Type: Spontaneous
  Country: US (occurrence: US)
  Receive Date: 20221019
  Receipt Date: 20221019
  Transmission Date: 20230113
  Serious: No
  Sender: FDA-Public Use
  Company Number: US-ELI_LILLY_AND_COMPANY-US202210003389

PATIENT
  Sex: Male

DRUGS (5)
  1. HUMALOG [Suspect]
     Active Substance: INSULIN LISPRO
     Indication: Product used for unknown indication
     Dosage: 12 U, TID (SLIDING SCALE PLUS 12 UNITS IN THE MORNING, 12 UNITS AT NOON AND 12 UNITS AT NIGHT)
     Route: 065
  2. HUMALOG [Suspect]
     Active Substance: INSULIN LISPRO
     Indication: Product used for unknown indication
     Dosage: 12 U, TID (SLIDING SCALE PLUS 12 UNITS IN THE MORNING, 12 UNITS AT NOON AND 12 UNITS AT NIGHT)
     Route: 065
  3. HUMALOG [Suspect]
     Active Substance: INSULIN LISPRO
     Dosage: 12 U, TID (SLIDING SCALE PLUS 12 UNITS IN THE MORNING, 12 UNITS AT NOON AND 12 UNITS AT NIGHT)
     Route: 065
  4. HUMALOG [Suspect]
     Active Substance: INSULIN LISPRO
     Dosage: 12 U, TID (SLIDING SCALE PLUS 12 UNITS IN THE MORNING, 12 UNITS AT NOON AND 12 UNITS AT NIGHT)
     Route: 065
  5. TRESIBA [Concomitant]
     Active Substance: INSULIN DEGLUDEC
     Indication: Diabetes mellitus

REACTIONS (1)
  - Diabetes mellitus [Unknown]
